FAERS Safety Report 6139781-8 (Version None)
Quarter: 2009Q2

REPORT INFORMATION
  Report Type: 
  Country: None (occurrence: None)
  Receive Date: 20090401
  Receipt Date: 20090327
  Transmission Date: 20091009
  Serious: Yes (Other)
  Sender: FDA-Public Use
  Company Number: B0535526A

PATIENT
  Sex: Male

DRUGS (5)
  1. SERETIDE [Suspect]
     Indication: ASTHMA
     Dosage: 1PUFF TWICE PER DAY
     Route: 055
  2. VENTOLIN [Suspect]
     Indication: ASTHMA
     Dosage: 100MCG AS REQUIRED
     Route: 055
  3. SALAMOL [Suspect]
     Indication: ASTHMA
     Dosage: 2.5MCG FOUR TIMES PER DAY
     Route: 055
  4. IPRATROPIUM BROMIDE (NEB) [Concomitant]
  5. PREDNISOLONE [Concomitant]

REACTIONS (5)
  - ASTHMA [None]
  - DYSPNOEA [None]
  - MIDDLE INSOMNIA [None]
  - OVERDOSE [None]
  - PRODUCT QUALITY ISSUE [None]
